FAERS Safety Report 8839715 (Version 1)
Quarter: 2012Q4

REPORT INFORMATION
  Report Type: Spontaneous
  Country: ES (occurrence: None)
  Receive Date: 20121011
  Receipt Date: 20121011
  Transmission Date: 20130627
  Serious: Yes (Other)
  Sender: FDA-Public Use
  Company Number: EU-2012-10255

PATIENT
  Age: 67 Year
  Sex: Male

DRUGS (1)
  1. PLETAL [Suspect]
     Indication: INTERMITTENT CLAUDICATION
     Route: 048
     Dates: start: 20120906, end: 20120911

REACTIONS (4)
  - Palpitations [None]
  - Erythema [None]
  - Blood pressure systolic increased [None]
  - Blood pressure diastolic decreased [None]
